FAERS Safety Report 16172330 (Version 1)
Quarter: 2019Q2

REPORT INFORMATION
  Report Type: Spontaneous
  Country: FI (occurrence: FI)
  Receive Date: 20190409
  Receipt Date: 20190409
  Transmission Date: 20190711
  Serious: Yes (Hospitalization)
  Sender: FDA-Public Use
  Company Number: FI-ORION CORPORATION ORION PHARMA-19_00006007

PATIENT
  Age: 74 Year
  Sex: Male

DRUGS (8)
  1. AMOXICILLIN TRIHYDRATE [Interacting]
     Active Substance: AMOXICILLIN
     Indication: SINUSITIS
     Dosage: 1500,MG,DAILY
     Route: 048
     Dates: start: 20190123, end: 20190127
  2. TREXAN [Suspect]
     Active Substance: METHOTREXATE SODIUM
     Indication: RHEUMATOID ARTHRITIS
     Dosage: 10,MG,DAILY
     Route: 048
     Dates: start: 20160324, end: 20190131
  3. AMLODIPIN SANDOZ [Concomitant]
     Indication: HYPERTENSION
     Dosage: 10,MG,DAILY
     Route: 048
  4. OXIKLORIN [Concomitant]
     Active Substance: HYDROXYCHLOROQUINE SULFATE
     Indication: RHEUMATOID ARTHRITIS
     Dosage: 300,MG,DAILY
     Route: 048
     Dates: start: 20160324, end: 20190131
  5. SPESICOR DOS [Concomitant]
     Indication: HYPERTENSION
     Dosage: 95,MG,DAILY
     Route: 048
  6. SOMAC [Concomitant]
     Active Substance: PANTOPRAZOLE SODIUM
     Indication: DYSPEPSIA
     Dosage: 40,MG,DAILY
     Route: 048
     Dates: start: 20181010
  7. AZITHROMYCIN ORION [Concomitant]
     Indication: SINUSITIS
     Dosage: 500,MG,DAILY
     Route: 048
     Dates: start: 20190128, end: 20190130
  8. MAREVAN FORTE [Concomitant]
     Active Substance: WARFARIN SODIUM
     Indication: VENOUS THROMBOSIS
     Route: 048

REACTIONS (8)
  - C-reactive protein increased [Not Recovered/Not Resolved]
  - Gamma-glutamyltransferase increased [Not Recovered/Not Resolved]
  - Drug interaction [Not Recovered/Not Resolved]
  - Antinuclear antibody positive [Not Recovered/Not Resolved]
  - Blood bilirubin increased [Not Recovered/Not Resolved]
  - Blood alkaline phosphatase increased [Not Recovered/Not Resolved]
  - Alanine aminotransferase increased [Not Recovered/Not Resolved]
  - Nausea [Not Recovered/Not Resolved]

NARRATIVE: CASE EVENT DATE: 20190131
